FAERS Safety Report 14009567 (Version 2)
Quarter: 2017Q4

REPORT INFORMATION
  Report Type: Spontaneous
  Country: US (occurrence: US)
  Receive Date: 20170925
  Receipt Date: 20171103
  Transmission Date: 20180321
  Serious: Yes (Death, Other)
  Sender: FDA-Public Use
  Company Number: US-BAUSCH-BL-2017-027817

PATIENT
  Age: 74 Year
  Sex: Male

DRUGS (1)
  1. XIFAXAN [Suspect]
     Active Substance: RIFAXIMIN
     Indication: HEPATIC CANCER
     Route: 048
     Dates: end: 201707

REACTIONS (3)
  - Off label use [Recovered/Resolved]
  - Pain [Unknown]
  - Failure to thrive [Fatal]

NARRATIVE: CASE EVENT DATE: 201707
